FAERS Safety Report 10886415 (Version 1)
Quarter: 2015Q1

REPORT INFORMATION
  Report Type: Spontaneous
  Country: US (occurrence: US)
  Receive Date: 20150304
  Receipt Date: 20150304
  Transmission Date: 20150721
  Serious: Yes (Other)
  Sender: FDA-Public Use
  Company Number: US-BAYER-2015-029578

PATIENT
  Sex: Female

DRUGS (1)
  1. BAYER CHEWABLE LOW DOSE ASPIRIN ORANGE FLAVORED [Suspect]
     Active Substance: ASPIRIN
     Indication: REHABILITATION THERAPY
     Dosage: 1 DF, QD
     Route: 048

REACTIONS (2)
  - Intentional product misuse [Unknown]
  - Haemorrhage subcutaneous [Unknown]
